FAERS Safety Report 7684008-9 (Version None)
Quarter: 2011Q3

REPORT INFORMATION
  Report Type: 
  Country: None (occurrence: None)
  Receive Date: 20110815
  Receipt Date: 20110805
  Transmission Date: 20111222
  Serious: Yes (Other)
  Sender: FDA-Public Use
  Company Number: DK-ASTRAZENECA-2011SE47352

PATIENT
  Sex: Female

DRUGS (6)
  1. SEROQUEL [Suspect]
     Dosage: 900-1200 MG DAILY
     Route: 048
     Dates: start: 20110101
  2. VALPROATE SODIUM [Concomitant]
  3. SEROQUEL [Suspect]
     Route: 048
  4. SEROQUEL [Suspect]
     Route: 048
  5. SEROQUEL [Suspect]
     Dosage: INCREASING DOSE
     Route: 048
     Dates: start: 20100801
  6. LAMICTAL [Concomitant]

REACTIONS (2)
  - DRUG PRESCRIBING ERROR [None]
  - BONE MARROW FAILURE [None]
